FAERS Safety Report 8435257-3 (Version None)
Quarter: 2012Q2

REPORT INFORMATION
  Report Type: 
  Country: None (occurrence: None)
  Receive Date: 20120614
  Receipt Date: 20120531
  Transmission Date: 20120825
  Serious: Yes (Hospitalization)
  Sender: FDA-Public Use
  Company Number: ES-MYLANLABS-2012S1011385

PATIENT
  Age: 79 Year
  Sex: Male

DRUGS (1)
  1. AZATHIOPRINE [Suspect]
     Route: 065

REACTIONS (3)
  - SEPSIS [None]
  - IMMUNOSUPPRESSION [None]
  - ACUTE FEBRILE NEUTROPHILIC DERMATOSIS [None]
